FAERS Safety Report 5933302-8 (Version None)
Quarter: 2008Q4

REPORT INFORMATION
  Report Type: 
  Country: None (occurrence: None)
  Receive Date: 20081028
  Receipt Date: 20081020
  Transmission Date: 20090506
  Serious: Yes (Disabling)
  Sender: FDA-Public Use
  Company Number: BR-B.I. PHARMACEUTICALS,INC./RIDGEFIELD-2008-BR-00183BR

PATIENT
  Sex: Female

DRUGS (1)
  1. SIFROL [Suspect]
     Indication: PARKINSON'S DISEASE

REACTIONS (4)
  - DRUG INEFFECTIVE [None]
  - MOVEMENT DISORDER [None]
  - MUSCLE RIGIDITY [None]
  - WALKING DISABILITY [None]
